FAERS Safety Report 12814576 (Version 1)
Quarter: 2016Q4

REPORT INFORMATION
  Report Type: Spontaneous
  Country: US (occurrence: US)
  Receive Date: 20161005
  Receipt Date: 20161005
  Transmission Date: 20170207
  Serious: Yes (Other)
  Sender: FDA-Public Use
  Company Number: US-AMGEN-USASP2015137767

PATIENT
  Age: 53 Year
  Sex: Female

DRUGS (1)
  1. PROLIA [Suspect]
     Active Substance: DENOSUMAB
     Indication: OSTEOPOROSIS POSTMENOPAUSAL
     Dosage: UNK
     Route: 065
     Dates: start: 201504

REACTIONS (10)
  - Erythema [Unknown]
  - Rash [Unknown]
  - Cellulitis [Recovered/Resolved]
  - Arthropod bite [Unknown]
  - Pruritus [Unknown]
  - Peripheral swelling [Unknown]
  - Feeling hot [Unknown]
  - Dry skin [Unknown]
  - Swelling [Unknown]
  - Pyrexia [Unknown]

NARRATIVE: CASE EVENT DATE: 2015
